FAERS Safety Report 4650671-X (Version None)
Quarter: 2005Q2

REPORT INFORMATION
  Report Type: 
  Country: None (occurrence: None)
  Receive Date: 20050429
  Receipt Date: 20050418
  Transmission Date: 20051028
  Serious: Yes (Other)
  Sender: FDA-Public Use
  Company Number: 2005043945

PATIENT
  Age: 66 Year
  Sex: Male

DRUGS (5)
  1. EMCYT [Suspect]
     Indication: PROSTATE CANCER
     Dosage: (280 MG, 3 TIMES A DAY, DAY 1 THRU 14), ORAL
     Route: 048
     Dates: start: 20010718, end: 20011030
  2. PACLITAXEL [Suspect]
     Indication: PROSTATE CANCER
     Dosage: (135 MG/M*2, CYCLIC)
     Dates: start: 20011030, end: 20011030
  3. ETOPOSIDE [Suspect]
     Indication: PROSTATE CANCER
     Dosage: (50 MG/M*2, TWICE A DAY, DAY 1 THRU 14)
     Dates: start: 20011030, end: 20011030
  4. ERYTHROPOIETIN (ERYTHROPOIETIN) [Concomitant]
  5. GOSERELIN [Suspect]
     Indication: PROSTATE CANCER
     Dates: start: 20020213, end: 20020213

REACTIONS (2)
  - ACUTE MYELOID LEUKAEMIA [None]
  - MYELODYSPLASTIC SYNDROME [None]
